FAERS Safety Report 9981269 (Version 3)
Quarter: 2014Q2

REPORT INFORMATION
  Report Type: Spontaneous
  Country: US (occurrence: US)
  Receive Date: 20140307
  Receipt Date: 20140430
  Transmission Date: 20141212
  Serious: Yes (Hospitalization, Other)
  Sender: FDA-Public Use
  Company Number: US-SA-2014SA027917

PATIENT
  Age: 48 Year
  Sex: Female
  Weight: 108.86 kg

DRUGS (21)
  1. FABRAZYME [Suspect]
     Indication: FABRY^S DISEASE
     Route: 042
     Dates: start: 20110510
  2. FABRAZYME [Suspect]
     Indication: FABRY^S DISEASE
     Route: 042
     Dates: start: 20110510
  3. NEXIUM [Concomitant]
  4. LISINOPRIL [Concomitant]
  5. KETOPROFEN [Concomitant]
  6. DURAGESIC [Concomitant]
  7. KEFLEX [Concomitant]
  8. AMITRIPTYLINE HYDROCHLORIDE [Concomitant]
  9. CYANOCOBALAMIN [Concomitant]
  10. ALLOPURINOL [Concomitant]
  11. CRESTOR [Concomitant]
  12. FOLIC ACID [Concomitant]
  13. LOVENOX [Concomitant]
  14. TRIFLURIDINE [Concomitant]
  15. EPIPEN [Concomitant]
  16. WATER [Concomitant]
  17. SODIUM CHLORIDE [Concomitant]
  18. NORMAL SALINE [Concomitant]
  19. HEPARIN [Concomitant]
  20. DIPHENHYDRAMINE [Concomitant]
  21. LEVAQUIN [Concomitant]

REACTIONS (5)
  - Pneumonia [Unknown]
  - Fall [Unknown]
  - Upper limb fracture [Unknown]
  - Inner ear disorder [Unknown]
  - Balance disorder [Unknown]
